FAERS Safety Report 17415455 (Version 2)
Quarter: 2020Q1

REPORT INFORMATION
  Report Type: Spontaneous
  Country: US (occurrence: US)
  Receive Date: 20200213
  Receipt Date: 20200324
  Transmission Date: 20200409
  Serious: No
  Sender: FDA-Public Use
  Company Number: US-SA-2020SA032322

PATIENT
  Age: 75 Year
  Sex: Male
  Weight: 64.4 kg

DRUGS (3)
  1. WARFARIN SODIUM. [Concomitant]
     Active Substance: WARFARIN SODIUM
     Dosage: 7.5 MG
  2. DUPIXENT [Suspect]
     Active Substance: DUPILUMAB
     Dosage: 300 MG/2ML, QOW
     Route: 058
  3. MOMETASONE FUROATE. [Concomitant]
     Active Substance: MOMETASONE FUROATE
     Dosage: POW

REACTIONS (4)
  - Nail candida [Unknown]
  - Localised infection [Unknown]
  - Onychomycosis [Unknown]
  - Tinea infection [Unknown]

NARRATIVE: CASE EVENT DATE: 20200110
